FAERS Safety Report 6041395-5 (Version None)
Quarter: 2009Q1

REPORT INFORMATION
  Report Type: 
  Country: None (occurrence: None)
  Receive Date: 20090116
  Receipt Date: 20081009
  Transmission Date: 20090719
  Serious: No
  Sender: FDA-Public Use
  Company Number: US-BRISTOL-MYERS SQUIBB COMPANY-14364491

PATIENT
  Sex: Male

DRUGS (2)
  1. ABILIFY [Suspect]
     Indication: DEPRESSION
     Dosage: 2MG OR 5MG
  2. ANTIDEPRESSANT [Suspect]
     Indication: DEPRESSION

REACTIONS (2)
  - NAUSEA [None]
  - SEDATION [None]
